FAERS Safety Report 4374183-6 (Version None)
Quarter: 2004Q2

REPORT INFORMATION
  Report Type: 
  Country: None (occurrence: None)
  Receive Date: 20040608
  Receipt Date: 20040608
  Transmission Date: 20050107
  Serious: Yes (Death)
  Sender: FDA-Public Use
  Company Number: None

PATIENT
  Age: 51 Year
  Sex: Male
  Weight: 99.7913 kg

DRUGS (3)
  1. DURAGESIC [Suspect]
     Indication: ARTHRALGIA
     Dosage: IV
     Route: 042
     Dates: start: 20040101, end: 20040530
  2. DURAGESIC [Suspect]
     Indication: KNEE OPERATION
     Dosage: IV
     Route: 042
     Dates: start: 20040101, end: 20040530
  3. DURAGESIC [Suspect]
     Indication: NEPHROLITHIASIS
     Dosage: IV
     Route: 042
     Dates: start: 20040101, end: 20040530

REACTIONS (3)
  - INTENTIONAL MISUSE [None]
  - MEDICATION ERROR [None]
  - OVERDOSE [None]
